APPROVED DRUG PRODUCT: ALBUTEROL SULFATE
Active Ingredient: ALBUTEROL SULFATE
Strength: EQ 2MG BASE
Dosage Form/Route: TABLET;ORAL
Application: A072860 | Product #002
Applicant: STRIDES PHARMA INTERNATIONAL AG
Approved: Dec 20, 1989 | RLD: No | RS: No | Type: DISCN